FAERS Safety Report 4907053-2 (Version None)
Quarter: 2006Q1

REPORT INFORMATION
  Report Type: 
  Country: None (occurrence: None)
  Receive Date: 20060206
  Receipt Date: 20060131
  Transmission Date: 20060701
  Serious: Yes (Death)
  Sender: FDA-Public Use
  Company Number: US-2005-026932

PATIENT
  Age: 40 Year
  Sex: Male

DRUGS (26)
  1. LEUKINE VS. PLACEBO (GM-CSF (9874)) INJECTION [Suspect]
     Indication: CROHN'S DISEASE
     Dosage: SEE IMAGE
     Route: 058
     Dates: start: 20050413, end: 20050515
  2. LEUKINE VS. PLACEBO (GM-CSF (9874)) INJECTION [Suspect]
     Indication: CROHN'S DISEASE
     Dosage: SEE IMAGE
     Route: 058
     Dates: start: 20050525, end: 20050606
  3. VITAMIN B-12 [Concomitant]
  4. VICODIN ES (HYDROCODONE BITARTRATE) [Concomitant]
  5. PROZAC [Concomitant]
  6. PRILOSEC [Concomitant]
  7. LOMOTIL [Concomitant]
  8. LISINOPRIL W/HYDROCHLOROTHIAZIDE (LISINOPRIL) [Concomitant]
  9. PROTONIX [Concomitant]
  10. ACETAMINOPHEN [Concomitant]
  11. DIPHENHYDRAMINE HCL [Concomitant]
  12. AMOXICILLIN [Concomitant]
  13. ACETAMINOPHEN [Concomitant]
  14. VICODIN ES (HYDROCODONE BITARTRATE) [Concomitant]
  15. HISTUSSIN HC (PHENYLEPHRINE HYDROCHLORIDE, CHLORPHENAMINE MALEATE, HYD [Concomitant]
  16. KETEK [Concomitant]
  17. MESALAMINE [Concomitant]
  18. PREDNISONE [Concomitant]
  19. HYDROCORTISONE SUPPOSITORY [Concomitant]
  20. FUROSEMIDE [Concomitant]
  21. NORTRIPTYLINE HCL [Concomitant]
  22. K-DUR 10 [Concomitant]
  23. ASPIRIN [Concomitant]
  24. PRIMATENE [Concomitant]
  25. SPIRONOLACTONE [Concomitant]
  26. PREGABALIN (PREGABALIN) [Concomitant]

REACTIONS (32)
  - ABDOMINAL PAIN [None]
  - ACCIDENTAL DEATH [None]
  - BACK PAIN [None]
  - BLOOD GLUCOSE DECREASED [None]
  - BRONCHITIS [None]
  - BRONCHOPNEUMONIA [None]
  - CARDIAC ARREST [None]
  - CONJUNCTIVAL HAEMORRHAGE [None]
  - CYANOSIS [None]
  - DILATATION VENTRICULAR [None]
  - DRUG ABUSER [None]
  - FREQUENT BOWEL MOVEMENTS [None]
  - HYPERTENSIVE HEART DISEASE [None]
  - JOINT SWELLING [None]
  - LOSS OF CONSCIOUSNESS [None]
  - MUSCULAR WEAKNESS [None]
  - NAUSEA [None]
  - NEUTROPHIL COUNT INCREASED [None]
  - PALLOR [None]
  - PANCREATITIS ACUTE [None]
  - PANCREATITIS CHRONIC [None]
  - PHARYNGITIS STREPTOCOCCAL [None]
  - RASH [None]
  - SUDDEN DEATH [None]
  - TACHYCARDIA [None]
  - TELANGIECTASIA [None]
  - THERAPEUTIC AGENT TOXICITY [None]
  - THERAPY NON-RESPONDER [None]
  - VENTRICULAR FIBRILLATION [None]
  - VENTRICULAR HYPERTROPHY [None]
  - VOMITING [None]
  - WEIGHT DECREASED [None]
